FAERS Safety Report 8978461 (Version 1)
Quarter: 2012Q4

REPORT INFORMATION
  Report Type: Report from Study
  Country: FR (occurrence: FR)
  Receive Date: 20121221
  Receipt Date: 20121221
  Transmission Date: 20130627
  Serious: Yes (Life-Threatening, Hospitalization, Disabling)
  Sender: FDA-Public Use
  Company Number: FR-BRISTOL-MYERS SQUIBB COMPANY-17207390

PATIENT
  Age: 34 Year
  Sex: Female
  Weight: 48 kg

DRUGS (19)
  1. SUSTIVA [Suspect]
     Indication: HIV INFECTION
     Dosage: 14Nov2008-ong
  2. RIFATER [Suspect]
     Indication: HIV INFECTION
     Dosage: 14Nov2008-ongm,1df=4df
  3. MYAMBUTOL [Suspect]
     Indication: HIV INFECTION
     Dosage: also taken on 14Nov2008,1DF = 2DF
  4. TRUVADA [Suspect]
     Indication: HIV INFECTION
     Route: 048
     Dates: start: 20081114
  5. ENFUVIRTIDE [Suspect]
     Indication: HIV INFECTION
     Route: 058
     Dates: start: 20081114, end: 20090430
  6. BACTRIM [Concomitant]
     Dosage: tablet
     Dates: start: 20081106
  7. FENTANYL CITRATE [Concomitant]
  8. SANDOSTATIN [Concomitant]
  9. RIBAVIRIN [Concomitant]
     Dates: end: 20091221
  10. SPECIAFOLDINE [Concomitant]
     Dates: start: 20081106
  11. SOLU-MEDROL [Concomitant]
     Dates: start: 20081201
  12. PREDNISOLONE SODIUM METASULFOBENZOATE [Concomitant]
     Dates: start: 20081201
  13. RIFADINE [Concomitant]
     Dosage: 28Mar2009-ong
     Dates: start: 20081114
  14. INEXIUM [Concomitant]
  15. NEURONTIN [Concomitant]
     Dates: start: 20081119
  16. PIRILENE [Concomitant]
     Dates: start: 20090206
  17. RIMIFON [Concomitant]
     Dates: start: 20090328, end: 20091221
  18. LAROXYL [Concomitant]
  19. ERYTHROMYCIN [Concomitant]

REACTIONS (4)
  - Impaired gastric emptying [Not Recovered/Not Resolved]
  - General physical health deterioration [Unknown]
  - Pyrexia [Recovered/Resolved]
  - Tuberculosis [Unknown]
